FAERS Safety Report 14523436 (Version 8)
Quarter: 2019Q1

REPORT INFORMATION
  Report Type: Spontaneous
  Country: DE (occurrence: DE)
  Receive Date: 20180212
  Receipt Date: 20190228
  Transmission Date: 20190417
  Serious: Yes (Hospitalization, Other)
  Sender: FDA-Public Use
  Company Number: DE-ASTRAZENECA-2018SE14663

PATIENT
  Age: 75 Year
  Sex: Male
  Weight: 81 kg

DRUGS (60)
  1. TOCILIZUMAB. [Suspect]
     Active Substance: TOCILIZUMAB
     Indication: RHEUMATOID ARTHRITIS
     Dosage: 162 MG, UNK, EVERY 12 DAYS
     Route: 065
     Dates: start: 201506
  2. TOCILIZUMAB. [Suspect]
     Active Substance: TOCILIZUMAB
     Indication: RHEUMATOID ARTHRITIS
     Dosage: 162 MG, UNK, EVERY 12 DAYS
     Route: 065
     Dates: start: 20180414
  3. TOCILIZUMAB. [Suspect]
     Active Substance: TOCILIZUMAB
     Indication: MYALGIA
     Dosage: 162 MG, UNK, EVERY 14 DAYS
     Route: 058
     Dates: start: 201704, end: 20171025
  4. TOCILIZUMAB. [Suspect]
     Active Substance: TOCILIZUMAB
     Indication: RHEUMATOID ARTHRITIS
     Dosage: 162 MG, UNK, EVERY 14 DAYS
     Route: 058
     Dates: start: 201704, end: 20171025
  5. TOCILIZUMAB. [Suspect]
     Active Substance: TOCILIZUMAB
     Indication: VASCULITIS
     Dosage: 162 MG, BID
     Route: 058
     Dates: start: 20180131
  6. TOCILIZUMAB. [Suspect]
     Active Substance: TOCILIZUMAB
     Indication: RHEUMATOID ARTHRITIS
     Dosage: 162 MG EVERY THREE WEEKS
     Route: 058
     Dates: start: 201811
  7. QUETIAPINE. [Suspect]
     Active Substance: QUETIAPINE
     Indication: PRODUCT USED FOR UNKNOWN INDICATION
     Route: 048
  8. TOCILIZUMAB. [Suspect]
     Active Substance: TOCILIZUMAB
     Indication: MYALGIA
     Dosage: 162 MG, UNK, EVERY 12 DAYS
     Route: 065
     Dates: start: 201506
  9. TOCILIZUMAB. [Suspect]
     Active Substance: TOCILIZUMAB
     Indication: VASCULITIS
     Dosage: 162 MG, UNK, EVERY 12 DAYS
     Route: 065
     Dates: start: 201506
  10. TOCILIZUMAB. [Suspect]
     Active Substance: TOCILIZUMAB
     Indication: RHEUMATOID ARTHRITIS
     Dosage: 162 MG, UNK, EVERY 12 DAYS
     Route: 065
     Dates: start: 20150706, end: 20171025
  11. TOCILIZUMAB. [Suspect]
     Active Substance: TOCILIZUMAB
     Indication: MYALGIA
     Dosage: 162 MG, UNK, EVERY 12 DAYS
     Route: 065
     Dates: start: 20150706, end: 20171025
  12. TOCILIZUMAB. [Suspect]
     Active Substance: TOCILIZUMAB
     Indication: MYALGIA
     Dosage: 162 MG, UNK, EVERY 12 DAYS
     Route: 065
     Dates: start: 20180414
  13. TOCILIZUMAB. [Suspect]
     Active Substance: TOCILIZUMAB
     Indication: MYALGIA
     Dosage: 324 MG ONCE A DAY
     Route: 058
     Dates: end: 201506
  14. TOCILIZUMAB. [Suspect]
     Active Substance: TOCILIZUMAB
     Indication: MYALGIA
     Dosage: 162 MG, BID
     Route: 058
     Dates: start: 20180131
  15. TOCILIZUMAB. [Suspect]
     Active Substance: TOCILIZUMAB
     Indication: RHEUMATOID ARTHRITIS
     Dosage: 162 MG, BID
     Route: 058
     Dates: start: 20180131
  16. TOCILIZUMAB. [Suspect]
     Active Substance: TOCILIZUMAB
     Indication: RHEUMATOID ARTHRITIS
     Dosage: 162 MG, UNK, EVERY 10 DAYS
     Route: 058
     Dates: start: 20180414
  17. ESCITALOPRAM [Concomitant]
     Active Substance: ESCITALOPRAM OXALATE
     Indication: PRODUCT USED FOR UNKNOWN INDICATION
     Dosage: 5 DROPS
     Route: 048
  18. TOCILIZUMAB. [Suspect]
     Active Substance: TOCILIZUMAB
     Indication: VASCULITIS
     Dosage: 162 MG, UNK, EVERY 12 DAYS
     Route: 065
     Dates: start: 201506
  19. TOCILIZUMAB. [Suspect]
     Active Substance: TOCILIZUMAB
     Indication: RHEUMATOID ARTHRITIS
     Dosage: 162 MG, BID
     Route: 065
     Dates: start: 201704, end: 20171025
  20. TOCILIZUMAB. [Suspect]
     Active Substance: TOCILIZUMAB
     Indication: MYALGIA
     Dosage: 162 MG, BID
     Route: 065
     Dates: start: 201704, end: 20171025
  21. COLECALCIFEROL [Suspect]
     Active Substance: CHOLECALCIFEROL
     Indication: OSTEOPOROSIS
     Dosage: 1000 IU, UNK
     Route: 048
     Dates: start: 201204
  22. TOCILIZUMAB. [Suspect]
     Active Substance: TOCILIZUMAB
     Indication: MYALGIA
     Dosage: 162 MG, UNK, EVERY 12 DAYS
     Route: 058
  23. TOCILIZUMAB. [Suspect]
     Active Substance: TOCILIZUMAB
     Indication: MYALGIA
     Dosage: 162 MG EVERY 10 DAYS
     Route: 058
     Dates: start: 20180414
  24. ESCITALOPRAM [Concomitant]
     Active Substance: ESCITALOPRAM OXALATE
     Indication: PRODUCT USED FOR UNKNOWN INDICATION
     Dosage: 10 DROPS DAILY
     Route: 048
  25. TOCILIZUMAB. [Suspect]
     Active Substance: TOCILIZUMAB
     Indication: RHEUMATOID ARTHRITIS
     Dosage: 162 MG, UNK, EVERY 12 DAYS
     Route: 065
     Dates: start: 201506
  26. TOCILIZUMAB. [Suspect]
     Active Substance: TOCILIZUMAB
     Indication: MYALGIA
     Dosage: 162 MG, UNK, EVERY 12 DAYS
     Route: 065
     Dates: start: 201506
  27. TOCILIZUMAB. [Suspect]
     Active Substance: TOCILIZUMAB
     Indication: VASCULITIS
     Dosage: 162 MG, UNK, EVERY 12 DAYS
     Route: 065
     Dates: start: 20150706, end: 20171025
  28. TOCILIZUMAB. [Suspect]
     Active Substance: TOCILIZUMAB
     Indication: RHEUMATOID ARTHRITIS
     Dosage: 162 MG, UNK, EVERY 12 DAYS
     Route: 058
  29. TOCILIZUMAB. [Suspect]
     Active Substance: TOCILIZUMAB
     Indication: VASCULITIS
     Dosage: 162 MG, BID
     Route: 058
     Dates: start: 20140601, end: 201506
  30. TOCILIZUMAB. [Suspect]
     Active Substance: TOCILIZUMAB
     Indication: RHEUMATOID ARTHRITIS
     Dosage: 162 MG, BID
     Route: 058
     Dates: start: 20140601, end: 201506
  31. TOCILIZUMAB. [Suspect]
     Active Substance: TOCILIZUMAB
     Indication: VASCULITIS
     Dosage: 324 MG EVERY 12 DAYS
     Route: 058
     Dates: start: 20150706, end: 20171025
  32. TOCILIZUMAB. [Suspect]
     Active Substance: TOCILIZUMAB
     Indication: RHEUMATOID ARTHRITIS
     Dosage: 162 MG EVERY 10 DAYS
     Route: 058
     Dates: start: 20180414
  33. TOCILIZUMAB. [Suspect]
     Active Substance: TOCILIZUMAB
     Indication: VASCULITIS
     Dosage: 162 MG EVERY THREE WEEKS
     Route: 058
     Dates: start: 201811
  34. TOCILIZUMAB. [Suspect]
     Active Substance: TOCILIZUMAB
     Indication: RHEUMATOID ARTHRITIS
     Dosage: 162 MG, BID
     Route: 065
     Dates: start: 20180131
  35. TOCILIZUMAB. [Suspect]
     Active Substance: TOCILIZUMAB
     Indication: MYALGIA
     Dosage: 162 MG, BID
     Route: 065
     Dates: start: 20180131
  36. CORTISONE ACETATE. [Concomitant]
     Active Substance: CORTISONE ACETATE
     Indication: PRODUCT USED FOR UNKNOWN INDICATION
     Dosage: 10 MG
  37. TOCILIZUMAB. [Suspect]
     Active Substance: TOCILIZUMAB
     Indication: VASCULITIS
     Dosage: 162 MG, UNK, EVERY 12 DAYS
     Route: 065
     Dates: start: 20180414
  38. TOCILIZUMAB. [Suspect]
     Active Substance: TOCILIZUMAB
     Indication: MYALGIA
     Dosage: 324 MG EVERY 12 DAYS
     Route: 058
     Dates: start: 20150706, end: 20171025
  39. TOCILIZUMAB. [Suspect]
     Active Substance: TOCILIZUMAB
     Indication: VASCULITIS
     Dosage: 162 MG, UNK, EVERY 10 DAYS
     Route: 058
     Dates: start: 20180414
  40. TOCILIZUMAB. [Suspect]
     Active Substance: TOCILIZUMAB
     Indication: VASCULITIS
     Dosage: 162 MG EVERY 10 DAYS
     Route: 058
     Dates: start: 20180414
  41. NADROPARIN CALCIUM [Suspect]
     Active Substance: NADROPARIN CALCIUM
     Indication: VENOUS THROMBOSIS LIMB
     Dosage: UNK
     Route: 065
  42. CLEXANE [Suspect]
     Active Substance: ENOXAPARIN SODIUM
     Indication: VENOUS THROMBOSIS LIMB
     Route: 065
     Dates: start: 201507
  43. FRAXIPARIN [Suspect]
     Active Substance: NADROPARIN CALCIUM
     Indication: VENOUS THROMBOSIS LIMB
     Route: 065
     Dates: start: 201507
  44. TOCILIZUMAB. [Suspect]
     Active Substance: TOCILIZUMAB
     Indication: VASCULITIS
     Dosage: 162 MG, UNK, EVERY 12 DAYS
     Route: 065
     Dates: start: 201404
  45. TOCILIZUMAB. [Suspect]
     Active Substance: TOCILIZUMAB
     Indication: MYALGIA
     Dosage: 162 MG, UNK, EVERY 12 DAYS
     Route: 065
     Dates: start: 201404
  46. TOCILIZUMAB. [Suspect]
     Active Substance: TOCILIZUMAB
     Indication: VASCULITIS
     Dosage: 162 MG, UNK, EVERY 12 DAYS
     Route: 058
  47. TOCILIZUMAB. [Suspect]
     Active Substance: TOCILIZUMAB
     Indication: MYALGIA
     Dosage: 162 MG, BID
     Route: 058
     Dates: start: 20140601, end: 201506
  48. TOCILIZUMAB. [Suspect]
     Active Substance: TOCILIZUMAB
     Indication: RHEUMATOID ARTHRITIS
     Dosage: 324 MG EVERY 12 DAYS
     Route: 058
     Dates: start: 20150706, end: 20171025
  49. TOCILIZUMAB. [Suspect]
     Active Substance: TOCILIZUMAB
     Indication: VASCULITIS
     Dosage: 162 MG, UNK, EVERY 14 DAYS
     Route: 058
     Dates: start: 201704, end: 20171025
  50. TOCILIZUMAB. [Suspect]
     Active Substance: TOCILIZUMAB
     Indication: RHEUMATOID ARTHRITIS
     Dosage: 162 MG, UNK, EVERY 12 DAYS
     Route: 065
     Dates: start: 201404
  51. TOCILIZUMAB. [Suspect]
     Active Substance: TOCILIZUMAB
     Indication: VASCULITIS
     Dosage: 162 MG, BID
     Route: 065
     Dates: start: 201704, end: 20171025
  52. TOCILIZUMAB. [Suspect]
     Active Substance: TOCILIZUMAB
     Indication: VASCULITIS
     Dosage: 162 MG, BID
     Route: 065
     Dates: start: 20180131
  53. PROLIA [Suspect]
     Active Substance: DENOSUMAB
     Indication: OSTEOPOROSIS
     Route: 065
     Dates: start: 201405
  54. TOCILIZUMAB. [Suspect]
     Active Substance: TOCILIZUMAB
     Indication: VASCULITIS
     Dosage: 324 MG ONCE A DAY
     Route: 058
     Dates: end: 201506
  55. TOCILIZUMAB. [Suspect]
     Active Substance: TOCILIZUMAB
     Indication: RHEUMATOID ARTHRITIS
     Dosage: 324 MG ONCE A DAY
     Route: 058
     Dates: end: 201506
  56. TOCILIZUMAB. [Suspect]
     Active Substance: TOCILIZUMAB
     Indication: MYALGIA
     Dosage: 162 MG, UNK, EVERY 10 DAYS
     Route: 058
     Dates: start: 20180414
  57. TOCILIZUMAB. [Suspect]
     Active Substance: TOCILIZUMAB
     Indication: MYALGIA
     Dosage: 162 MG EVERY THREE WEEKS
     Route: 058
     Dates: start: 201811
  58. PANTOPRAZOLE [Concomitant]
     Active Substance: PANTOPRAZOLE
     Indication: PRODUCT USED FOR UNKNOWN INDICATION
  59. ESCITALOPRAM [Concomitant]
     Active Substance: ESCITALOPRAM OXALATE
     Indication: PRODUCT USED FOR UNKNOWN INDICATION
     Dosage: 8 DROPS
     Route: 048
  60. LISIHEXAL [Concomitant]
     Active Substance: LISINOPRIL
     Indication: PRODUCT USED FOR UNKNOWN INDICATION
     Dosage: 20.0MG UNKNOWN
     Route: 065

REACTIONS (21)
  - Erysipelas [Recovering/Resolving]
  - Lymphocele [Recovered/Resolved]
  - Lymphoedema [Recovered/Resolved]
  - Impaired healing [Recovered/Resolved]
  - Autoimmune disorder [Unknown]
  - Inappropriate schedule of product administration [Unknown]
  - Suture rupture [Recovered/Resolved]
  - Product use in unapproved indication [Unknown]
  - Venous thrombosis limb [Not Recovered/Not Resolved]
  - Sepsis [Recovering/Resolving]
  - Dysuria [Unknown]
  - Off label use [Unknown]
  - Sleep disorder [Unknown]
  - Platelet count decreased [Unknown]
  - Leukopenia [Recovering/Resolving]
  - Depression [Not Recovered/Not Resolved]
  - Fall [Unknown]
  - Rash erythematous [Unknown]
  - Hyperaesthesia [Unknown]
  - Soft tissue disorder [Recovered/Resolved]
  - Prostate cancer [Recovered/Resolved]

NARRATIVE: CASE EVENT DATE: 201407
